FAERS Safety Report 16347156 (Version 2)
Quarter: 2019Q2

REPORT INFORMATION
  Report Type: Report from Study
  Country: US (occurrence: US)
  Receive Date: 20190523
  Receipt Date: 20190613
  Transmission Date: 20190711
  Serious: Yes (Hospitalization, Other)
  Sender: FDA-Public Use
  Company Number: US-GILEAD-2019-0409358

PATIENT
  Age: 72 Year
  Sex: Male

DRUGS (6)
  1. RELISTOR [Concomitant]
     Active Substance: METHYLNALTREXONE BROMIDE
     Indication: CONSTIPATION
     Dosage: UNK
     Dates: start: 201905
  2. IDELALISIB [Suspect]
     Active Substance: IDELALISIB
     Indication: CHRONIC LYMPHOCYTIC LEUKAEMIA
     Dosage: 150 MG, BID
     Route: 048
     Dates: start: 20150815, end: 20190426
  3. FENTANYL. [Suspect]
     Active Substance: FENTANYL
     Indication: BURNING SENSATION
     Dosage: UNK
     Route: 065
  4. MORPHINE [Suspect]
     Active Substance: MORPHINE
     Indication: BONE PAIN
  5. FENTANYL. [Suspect]
     Active Substance: FENTANYL
     Indication: BONE PAIN
  6. MORPHINE [Suspect]
     Active Substance: MORPHINE
     Indication: BURNING SENSATION
     Dosage: UNK
     Route: 042
     Dates: start: 20190507, end: 20190509

REACTIONS (7)
  - Drug ineffective [Not Recovered/Not Resolved]
  - Bone pain [Recovering/Resolving]
  - Burning sensation [Recovering/Resolving]
  - Constipation [Recovered/Resolved]
  - Disease progression [Unknown]
  - Biopsy bone [Recovered/Resolved]
  - White blood cell count increased [Not Recovered/Not Resolved]

NARRATIVE: CASE EVENT DATE: 201904
